FAERS Safety Report 4288660-X (Version None)
Quarter: 2004Q1

REPORT INFORMATION
  Report Type: 
  Country: None (occurrence: None)
  Receive Date: 20040205
  Receipt Date: 20040127
  Transmission Date: 20041129
  Serious: Yes (Death)
  Sender: FDA-Public Use
  Company Number: GB-JNJFOC-20031203965

PATIENT
  Age: 75 Year
  Sex: Male

DRUGS (7)
  1. ZYDOL (TRAMADOL HYDROCHLORIDE) TABLETS [Suspect]
     Indication: ARTHRALGIA
     Dosage: 100 MG, 40 IN 1 TOTAL, ORAL
     Route: 048
     Dates: start: 20030920, end: 20030920
  2. ZYDOL (TRAMADOL HYDROCHLORIDE) TABLETS [Suspect]
     Indication: BACK PAIN
     Dosage: 100 MG, 40 IN 1 TOTAL, ORAL
     Route: 048
     Dates: start: 20030920, end: 20030920
  3. PARACETAMOL (PARACETAMOL) [Concomitant]
  4. AMLODIPINE [Concomitant]
  5. FUROSEMIDE [Concomitant]
  6. OMEPRAZOLE [Concomitant]
  7. NAPROXEN [Concomitant]

REACTIONS (5)
  - CELLULITIS [None]
  - COMA [None]
  - DRUG TOXICITY [None]
  - INTENTIONAL OVERDOSE [None]
  - MULTI-ORGAN FAILURE [None]
